FAERS Safety Report 14788137 (Version 4)
Quarter: 2018Q3

REPORT INFORMATION
  Report Type: Report from Study
  Country: None (occurrence: US)
  Receive Date: 20180422
  Receipt Date: 20180806
  Transmission Date: 20181010
  Serious: Yes (Hospitalization, Other)
  Sender: FDA-Public Use
  Company Number: US-ABBVIE-18K-163-2326918-00

PATIENT
  Sex: Female

DRUGS (3)
  1. HUMIRA [Suspect]
     Active Substance: ADALIMUMAB
     Dosage: DAY 15
     Route: 058
     Dates: start: 20180416, end: 20180416
  2. HUMIRA [Suspect]
     Active Substance: ADALIMUMAB
     Indication: CROHN^S DISEASE
     Dosage: DAY 1
     Route: 058
     Dates: start: 20180330, end: 20180330
  3. HUMIRA [Suspect]
     Active Substance: ADALIMUMAB
     Route: 058
     Dates: start: 201804

REACTIONS (18)
  - Pyrexia [Recovered/Resolved]
  - Fear of injection [Unknown]
  - Insomnia [Recovered/Resolved]
  - Injection site pain [Unknown]
  - Feeling cold [Unknown]
  - Ocular hyperaemia [Recovered/Resolved]
  - Diarrhoea [Recovering/Resolving]
  - Abdominal pain upper [Unknown]
  - Nasopharyngitis [Unknown]
  - Anal skin tags [Unknown]
  - Decreased appetite [Not Recovered/Not Resolved]
  - Abnormal faeces [Unknown]
  - Acne [Unknown]
  - Abdominal pain [Recovering/Resolving]
  - Rectal ulcer haemorrhage [Unknown]
  - Hospitalisation [Recovered/Resolved]
  - Fear [Not Recovered/Not Resolved]
  - Vomiting [Unknown]

NARRATIVE: CASE EVENT DATE: 2018
